APPROVED DRUG PRODUCT: POTASSIUM CHLORIDE 20MEQ IN PLASTIC CONTAINER
Active Ingredient: POTASSIUM CHLORIDE
Strength: 1.49GM/100ML
Dosage Form/Route: INJECTABLE;INJECTION
Application: N019904 | Product #006 | TE Code: AP
Applicant: BAXTER HEALTHCARE CORP
Approved: Dec 17, 1990 | RLD: Yes | RS: Yes | Type: RX